FAERS Safety Report 9351316 (Version 1)
Quarter: 2013Q2

REPORT INFORMATION
  Report Type: Spontaneous
  Country: FR (occurrence: FR)
  Receive Date: 20130617
  Receipt Date: 20130617
  Transmission Date: 20140414
  Serious: Yes (Other)
  Sender: FDA-Public Use
  Company Number: PHHY2013FR059427

PATIENT
  Age: 69 Year
  Sex: Female

DRUGS (7)
  1. VORICONAZOLE [Suspect]
     Indication: ASPERGILLUS INFECTION
     Dosage: 200 MG, BID
  2. WARFARIN [Suspect]
  3. BISOPROLOL [Concomitant]
  4. PREGABALIN [Concomitant]
  5. LISINOPRIL [Concomitant]
  6. HYDROCHLOROTHIAZIDE [Concomitant]
  7. OMEPRAZOLE [Concomitant]

REACTIONS (8)
  - Drug reaction with eosinophilia and systemic symptoms [Recovered/Resolved]
  - Pyrexia [Recovered/Resolved]
  - Eosinophilia [Recovered/Resolved]
  - Hepatocellular injury [Recovered/Resolved]
  - Cholestasis [Recovered/Resolved]
  - Rash pruritic [Recovered/Resolved]
  - Rash [Recovered/Resolved]
  - Transaminases abnormal [Recovered/Resolved]
